FAERS Safety Report 23275943 (Version 3)
Quarter: 2024Q1

REPORT INFORMATION
  Report Type: Report from Study
  Country: CA (occurrence: CA)
  Receive Date: 20231208
  Receipt Date: 20240103
  Transmission Date: 20240409
  Serious: Yes (Hospitalization, Other)
  Sender: FDA-Public Use
  Company Number: CA-JNJFOC-20231040462

PATIENT
  Sex: Female

DRUGS (18)
  1. MACITENTAN [Suspect]
     Active Substance: MACITENTAN
     Indication: Pulmonary hypertension
     Route: 048
     Dates: start: 20220809
  2. EPOPROSTENOL SODIUM [Suspect]
     Active Substance: EPOPROSTENOL SODIUM
     Indication: Pulmonary hypertension
     Route: 042
     Dates: start: 20230227, end: 20231130
  3. SELEXIPAG [Suspect]
     Active Substance: SELEXIPAG
     Indication: Pulmonary hypertension
     Route: 048
     Dates: start: 20231130
  4. SELEXIPAG [Suspect]
     Active Substance: SELEXIPAG
     Route: 048
  5. SELEXIPAG [Suspect]
     Active Substance: SELEXIPAG
     Route: 048
  6. ADCIRCA [Concomitant]
     Active Substance: TADALAFIL
  7. ESOMEPRAZOLE [Concomitant]
     Active Substance: ESOMEPRAZOLE
  8. ZOPICLONE [Concomitant]
     Active Substance: ZOPICLONE
  9. DOMPERIDONE [Concomitant]
     Active Substance: DOMPERIDONE
  10. VENLAFAXINE [Concomitant]
     Active Substance: VENLAFAXINE HYDROCHLORIDE
  11. FUROSEMIDE [Concomitant]
     Active Substance: FUROSEMIDE
  12. ROSUVASTATIN [Concomitant]
     Active Substance: ROSUVASTATIN
  13. GABAPENTIN [Concomitant]
     Active Substance: GABAPENTIN
  14. ERGOCALCIFEROL [Concomitant]
     Active Substance: ERGOCALCIFEROL
  15. PLAVIX [Concomitant]
     Active Substance: CLOPIDOGREL BISULFATE
  16. CANDESARTAN [Concomitant]
     Active Substance: CANDESARTAN
  17. ADALAT [Concomitant]
     Active Substance: NIFEDIPINE
  18. NITROGLYCERIN [Concomitant]
     Active Substance: NITROGLYCERIN

REACTIONS (4)
  - Clostridium difficile infection [Unknown]
  - Therapy change [Unknown]
  - Malaise [Not Recovered/Not Resolved]
  - COVID-19 [Unknown]
